FAERS Safety Report 20556406 (Version 1)
Quarter: 2022Q1

REPORT INFORMATION
  Report Type: Spontaneous
  Country: GB (occurrence: GB)
  Receive Date: 20220305
  Receipt Date: 20220305
  Transmission Date: 20220423
  Serious: Yes (Other)
  Sender: FDA-Public Use
  Company Number: GB-ABBVIE-22K-167-4304162-00

PATIENT
  Sex: Male

DRUGS (2)
  1. VALPROATE SODIUM [Suspect]
     Active Substance: VALPROATE SODIUM
     Indication: Maternal exposure timing unspecified
     Route: 064
  2. LEVETIRACETAM [Suspect]
     Active Substance: LEVETIRACETAM
     Indication: Maternal exposure timing unspecified
     Route: 064

REACTIONS (5)
  - Foetal growth restriction [Unknown]
  - Epileptic encephalopathy [Unknown]
  - Cognitive disorder [Unknown]
  - Seizure [Unknown]
  - Foetal exposure during pregnancy [Unknown]
